FAERS Safety Report 17415030 (Version 9)
Quarter: 2022Q2

REPORT INFORMATION
  Report Type: Report from Study
  Country: US (occurrence: US)
  Receive Date: 20200213
  Receipt Date: 20220418
  Transmission Date: 20220720
  Serious: Yes (Other)
  Sender: FDA-Public Use
  Company Number: US-NOVARTISPH-NVSC2020US037200

PATIENT
  Sex: Male

DRUGS (1)
  1. COSENTYX [Suspect]
     Active Substance: SECUKINUMAB
     Indication: Product used for unknown indication
     Dosage: UNK
     Route: 065

REACTIONS (9)
  - Colon cancer [Unknown]
  - Alopecia [Recovering/Resolving]
  - Hernia [Unknown]
  - Psoriasis [Unknown]
  - Rash [Unknown]
  - Nail hypertrophy [Unknown]
  - Macule [Unknown]
  - Stress [Unknown]
  - Product dose omission issue [Unknown]
